FAERS Safety Report 9674826 (Version 2)
Quarter: 2013Q4

REPORT INFORMATION
  Report Type: Spontaneous
  Country: DE (occurrence: DE)
  Receive Date: 20131107
  Receipt Date: 20131107
  Transmission Date: 20140711
  Serious: No
  Sender: FDA-Public Use
  Company Number: PHHY2013DE057033

PATIENT
  Sex: Female
  Weight: 78 kg

DRUGS (4)
  1. TASIGNA [Suspect]
     Indication: CHRONIC MYELOID LEUKAEMIA
     Dosage: 100 MG, DAILY
     Route: 048
  2. TASIGNA [Suspect]
     Dosage: 600 MG, DAILY
     Route: 048
  3. QLAIRA [Concomitant]
     Indication: CONTRACEPTION
  4. L-THYROXIN [Concomitant]

REACTIONS (12)
  - Thyroid neoplasm [Unknown]
  - Asthenia [Unknown]
  - Listless [Unknown]
  - Infection [Unknown]
  - Headache [Not Recovered/Not Resolved]
  - Arthralgia [Not Recovered/Not Resolved]
  - Alopecia [Not Recovered/Not Resolved]
  - General physical health deterioration [Unknown]
  - Skin disorder [Not Recovered/Not Resolved]
  - Mental disorder [Unknown]
  - Overweight [Unknown]
  - Fatigue [Unknown]
